FAERS Safety Report 24655331 (Version 1)
Quarter: 2024Q4

REPORT INFORMATION
  Report Type: Spontaneous
  Country: CA (occurrence: CA)
  Receive Date: 20241123
  Receipt Date: 20241123
  Transmission Date: 20250115
  Serious: Yes (Other)
  Sender: CELLTRION
  Company Number: CA-PFIZER INC-202300261264

PATIENT

DRUGS (5)
  1. INFLECTRA [Suspect]
     Active Substance: INFLIXIMAB-DYYB
     Indication: Crohn^s disease
     Dosage: 5 MG/KG, 0, 2, 6 WEEKS, THEN EVERY 8 WEEKS
     Route: 042
     Dates: start: 20230417, end: 20230725
  2. INFLECTRA [Suspect]
     Active Substance: INFLIXIMAB-DYYB
     Dosage: 5 MG/KG, 0, 2, 6 WEEKS, THEN EVERY 8 WEEKS
     Route: 042
     Dates: start: 20230602
  3. INFLECTRA [Suspect]
     Active Substance: INFLIXIMAB-DYYB
     Dosage: 360 MG, EVERY 8 WEEKS
     Route: 042
     Dates: start: 20230725
  4. INFLECTRA [Suspect]
     Active Substance: INFLIXIMAB-DYYB
     Dosage: 362 MG, AFTER 9 WEEKS (SUPPOSED TO RECEIVE 10 MG/KG)
     Route: 042
     Dates: start: 20230926
  5. INFLECTRA [Suspect]
     Active Substance: INFLIXIMAB-DYYB
     Dosage: 700 MG, EVERY 8 WEEKS
     Route: 042
     Dates: start: 20241018

REACTIONS (15)
  - Ileal stenosis [Unknown]
  - Ileal ulcer [Unknown]
  - Polypectomy [Unknown]
  - Polyp [Unknown]
  - Drug level decreased [Unknown]
  - Contusion [Unknown]
  - Increased tendency to bruise [Unknown]
  - Joint swelling [Recovering/Resolving]
  - Pruritus [Unknown]
  - Swelling [Unknown]
  - Faecal calprotectin increased [Not Recovered/Not Resolved]
  - Blood alkaline phosphatase increased [Unknown]
  - Off label use [Unknown]
  - Inappropriate schedule of product administration [Unknown]
  - Incorrect dose administered [Unknown]

NARRATIVE: CASE EVENT DATE: 20230101
